FAERS Safety Report 16208597 (Version 1)
Quarter: 2019Q2

REPORT INFORMATION
  Report Type: Spontaneous
  Country: DZ (occurrence: DZ)
  Receive Date: 20190417
  Receipt Date: 20190417
  Transmission Date: 20190711
  Serious: Yes (Other)
  Sender: FDA-Public Use
  Company Number: DZ-ACCORD-123049

PATIENT
  Age: 51 Year
  Sex: Male
  Weight: 58 kg

DRUGS (2)
  1. CAPEMAX (CAPECITABINE) [Suspect]
     Active Substance: CAPECITABINE
     Indication: NEOPLASM
     Dosage: 6 CP/ DAY
     Route: 048
     Dates: start: 20180726, end: 20180926
  2. OXALIPLATIN. [Suspect]
     Active Substance: OXALIPLATIN
     Indication: NEOPLASM
     Dosage: 140 MG / 21 DAY
     Route: 042
     Dates: start: 20180726, end: 20180906

REACTIONS (4)
  - Hyperkalaemia [Unknown]
  - Abdominal pain [Not Recovered/Not Resolved]
  - Hyperproteinaemia [Unknown]
  - Diarrhoea [Not Recovered/Not Resolved]

NARRATIVE: CASE EVENT DATE: 20180907
